FAERS Safety Report 6234179-6 (Version None)
Quarter: 2009Q2

REPORT INFORMATION
  Report Type: 
  Country: None (occurrence: None)
  Receive Date: 20090616
  Receipt Date: 20090603
  Transmission Date: 20091009
  Serious: Yes (Life-Threatening)
  Sender: FDA-Public Use
  Company Number: 2009AL003867

PATIENT
  Age: 79 Year
  Sex: Female

DRUGS (10)
  1. AMLODIPINE BESYLATE [Suspect]
     Indication: HYPERTENSION
     Dosage: 5 MG;PO
     Route: 048
     Dates: end: 20090527
  2. LISINOPRIL [Concomitant]
  3. ATORVASTATIN CALCIUM [Concomitant]
  4. DILTIAZEM [Concomitant]
  5. ACETYLSALICYLIC ACID [Concomitant]
  6. BETAHISTINE [Concomitant]
  7. SERTRALINE [Concomitant]
  8. SERETIDE [Concomitant]
  9. ALBUTEROL [Concomitant]
  10. IPRATROPIUM BROMIDE [Concomitant]

REACTIONS (3)
  - ANGIOEDEMA [None]
  - BRONCHIAL OEDEMA [None]
  - LARYNGEAL OEDEMA [None]
